FAERS Safety Report 5030719-3 (Version None)
Quarter: 2006Q2

REPORT INFORMATION
  Report Type: 
  Country: None (occurrence: None)
  Receive Date: 20060615
  Receipt Date: 20060605
  Transmission Date: 20061013
  Serious: Yes (Hospitalization, Other)
  Sender: FDA-Public Use
  Company Number: L06-IND-02195-01

PATIENT
  Sex: Female

DRUGS (4)
  1. ESCITALOPRAM OXALATE [Suspect]
     Indication: BIPOLAR I DISORDER
     Dosage: 20 MG QD
  2. OLANZAPINE [Suspect]
     Indication: PSYCHOTIC DISORDER
     Dosage: 7.5 MG QD
  3. LAMOTRIGINE [Concomitant]
  4. THYROXIN (LEVOTHYROXINE SODIUM) [Concomitant]

REACTIONS (4)
  - AKATHISIA [None]
  - INSOMNIA [None]
  - RESTLESSNESS [None]
  - THERAPY NON-RESPONDER [None]
